FAERS Safety Report 25778690 (Version 1)
Quarter: 2025Q3

REPORT INFORMATION
  Report Type: Spontaneous
  Country: US (occurrence: US)
  Receive Date: 20250909
  Receipt Date: 20250909
  Transmission Date: 20251021
  Serious: No
  Sender: TRIS PHARMA, INC.
  Company Number: US-TRIS PHARMA, INC.-25US012065

PATIENT

DRUGS (2)
  1. DYANAVEL XR [Suspect]
     Active Substance: AMPHETAMINE
     Indication: Attention deficit hyperactivity disorder
     Route: 048
     Dates: start: 20250818, end: 20250821
  2. DYANAVEL XR [Suspect]
     Active Substance: AMPHETAMINE
     Route: 048
     Dates: start: 20250816

REACTIONS (5)
  - Abnormal behaviour [Recovered/Resolved]
  - Condition aggravated [Recovered/Resolved]
  - Speech disorder [Recovered/Resolved]
  - Obsessive-compulsive disorder [Recovered/Resolved]
  - Off label use [Unknown]

NARRATIVE: CASE EVENT DATE: 20250801
